FAERS Safety Report 12617049 (Version 1)
Quarter: 2016Q3

REPORT INFORMATION
  Report Type: Report from Study
  Country: US (occurrence: US)
  Receive Date: 20160803
  Receipt Date: 20160803
  Transmission Date: 20161109
  Serious: Yes (Hospitalization, Other)
  Sender: FDA-Public Use
  Company Number: US-ROCHE-769755

PATIENT
  Age: 40 Year
  Sex: Male
  Weight: 94.2 kg

DRUGS (1)
  1. VISMODEGIB [Suspect]
     Active Substance: VISMODEGIB
     Indication: MEDULLOBLASTOMA
     Route: 048
     Dates: start: 20101230, end: 20110112

REACTIONS (5)
  - Lymphocyte count decreased [Unknown]
  - Seizure [Recovered/Resolved]
  - Syncope [Unknown]
  - Anaemia [Unknown]
  - Pain [Unknown]

NARRATIVE: CASE EVENT DATE: 20110104
